FAERS Safety Report 5894115-9 (Version None)
Quarter: 2008Q3

REPORT INFORMATION
  Report Type: 
  Country: None (occurrence: None)
  Receive Date: 20080923
  Receipt Date: 20080220
  Transmission Date: 20090109
  Serious: No
  Sender: FDA-Public Use
  Company Number: US-ASTRAZENECA-2008UW00668

PATIENT
  Age: 40 Year
  Sex: Male
  Weight: 72.1 kg

DRUGS (5)
  1. SEROQUEL [Suspect]
     Indication: BIPOLAR DISORDER
     Route: 048
     Dates: start: 19990101, end: 20070301
  2. SEROQUEL [Suspect]
     Indication: DEPRESSION
     Route: 048
     Dates: start: 19990101, end: 20070301
  3. CLOZARIL [Concomitant]
     Dates: start: 20000801
  4. HALDOL [Concomitant]
     Dates: start: 20040201
  5. THORAZINE [Concomitant]

REACTIONS (2)
  - DIABETES MELLITUS [None]
  - JOINT DISLOCATION [None]
